FAERS Safety Report 5917015-4 (Version None)
Quarter: 2008Q4

REPORT INFORMATION
  Report Type: 
  Country: None (occurrence: None)
  Receive Date: 20081010
  Receipt Date: 20081010
  Transmission Date: 20090506
  Serious: Yes (Other)
  Sender: FDA-Public Use
  Company Number: None

PATIENT
  Age: 49 Year
  Sex: Male

DRUGS (8)
  1. IMMUNE GLOBULIN (HUMAN) [Suspect]
     Indication: BLOOD IMMUNOGLOBULIN M DECREASED
     Dosage: ROUTE: 041            D1,D2,D3,D6,D7,
     Dates: start: 20080528
  2. IMMUNE GLOBULIN (HUMAN) [Suspect]
     Indication: BLOOD IMMUNOGLOBULIN M DECREASED
     Dosage: ROUTE: 041            D1,D2,D3,D6,D7,
     Dates: start: 20080623
  3. IMMUNE GLOBULIN (HUMAN) [Suspect]
     Indication: BLOOD IMMUNOGLOBULIN M DECREASED
     Dosage: ROUTE: 041            D1,D2,D3,D6,D7,
     Dates: start: 20080707
  4. IMMUNE GLOBULIN (HUMAN) [Suspect]
     Indication: BLOOD IMMUNOGLOBULIN M DECREASED
     Dosage: ROUTE: 041            D1,D2,D3,D6,D7,
     Dates: start: 20080721
  5. IMMUNE GLOBULIN (HUMAN) [Suspect]
     Indication: BLOOD IMMUNOGLOBULIN M DECREASED
     Dosage: ROUTE: 041            D1,D2,D3,D6,D7,
     Dates: start: 20080804
  6. IMMUNE GLOBULIN (HUMAN) [Suspect]
     Indication: BLOOD IMMUNOGLOBULIN M DECREASED
     Dosage: ROUTE: 041            D1,D2,D3,D6,D7,
     Dates: start: 20080818
  7. IMMUNE GLOBULIN (HUMAN) [Suspect]
     Indication: BLOOD IMMUNOGLOBULIN M DECREASED
     Dosage: ROUTE: 041            D1,D2,D3,D6,D7,
     Dates: start: 20080902
  8. IMMUNE GLOBULIN (HUMAN) [Suspect]

REACTIONS (1)
  - HEPATITIS C POSITIVE [None]
